FAERS Safety Report 6166232-X (Version None)
Quarter: 2009Q2

REPORT INFORMATION
  Report Type: 
  Country: None (occurrence: None)
  Receive Date: 20090424
  Receipt Date: 20090415
  Transmission Date: 20091009
  Serious: Yes (Hospitalization, Other)
  Sender: FDA-Public Use
  Company Number: PHHY2009ES14816

PATIENT
  Age: 29 Year
  Sex: Female

DRUGS (7)
  1. CARBAMAZEPINE [Suspect]
     Indication: HEADACHE
  2. CARBAMAZEPINE [Suspect]
     Indication: PETIT MAL EPILEPSY
  3. PHENYTOIN [Concomitant]
     Indication: HEADACHE
  4. PHENYTOIN [Concomitant]
     Indication: PETIT MAL EPILEPSY
  5. VALPROATE SODIUM [Concomitant]
     Indication: HEADACHE
  6. VALPROATE SODIUM [Concomitant]
     Indication: PETIT MAL EPILEPSY
  7. FERROUS SULFATE TAB [Concomitant]
     Dosage: 80 MG

REACTIONS (10)
  - CONVULSION [None]
  - DRUG EXPOSURE DURING PREGNANCY [None]
  - ENDOTRACHEAL INTUBATION [None]
  - INDUCED LABOUR [None]
  - LOSS OF CONSCIOUSNESS [None]
  - MECHANICAL VENTILATION [None]
  - PREMATURE LABOUR [None]
  - PREMATURE RUPTURE OF MEMBRANES [None]
  - SEDATIVE THERAPY [None]
  - VITAMIN B6 DEFICIENCY [None]
